FAERS Safety Report 4605099-5 (Version None)
Quarter: 2005Q1

REPORT INFORMATION
  Report Type: 
  Country: None (occurrence: None)
  Receive Date: 20050311
  Receipt Date: 20050103
  Transmission Date: 20050727
  Serious: Yes (Hospitalization)
  Sender: FDA-Public Use
  Company Number: IN-NOVOPROD-241476

PATIENT
  Sex: Female
  Weight: 53 kg

DRUGS (5)
  1. NOVOMIX 30 FLEXPEN [Suspect]
     Indication: INSULIN-REQUIRING TYPE II DIABETES MELLITUS
     Dosage: 46 IU, QD
     Route: 058
     Dates: start: 20050101, end: 20050103
  2. TRAMADOL HCL [Concomitant]
     Dosage: 100 MG, QD
     Route: 048
     Dates: start: 20041231, end: 20050102
  3. CEFTRIAXONE [Concomitant]
     Dosage: 2 G, QD
     Route: 042
     Dates: start: 20041231, end: 20050102
  4. METRONIDAZOLE [Concomitant]
     Dosage: 800 ML, QD
     Route: 042
     Dates: start: 20041231, end: 20050102
  5. LEVOFLOXACIN [Concomitant]
     Dosage: 500 MG, BID
     Dates: start: 20041231, end: 20050102

REACTIONS (3)
  - BLOOD GLUCOSE INCREASED [None]
  - OEDEMA PERIPHERAL [None]
  - PAIN [None]
